FAERS Safety Report 12727936 (Version 4)
Quarter: 2017Q1

REPORT INFORMATION
  Report Type: Spontaneous
  Country: US (occurrence: US)
  Receive Date: 20160909
  Receipt Date: 20170309
  Transmission Date: 20170428
  Serious: No
  Sender: FDA-Public Use
  Company Number: US-ASTELLAS-2016US024927

PATIENT
  Age: 69 Year
  Sex: Female
  Weight: 50 kg

DRUGS (3)
  1. AMBIEN [Concomitant]
     Active Substance: ZOLPIDEM TARTRATE
     Indication: PRODUCT USED FOR UNKNOWN INDICATION
     Route: 048
  2. CRESEMBA [Suspect]
     Active Substance: ISAVUCONAZONIUM SULFATE
     Indication: ASPERGILLUS INFECTION
     Dosage: 372 MG (2 CAPSULES OF 186MG), ONCE DAILY
     Route: 048
     Dates: start: 201606
  3. CRESEMBA [Suspect]
     Active Substance: ISAVUCONAZONIUM SULFATE
     Indication: FUNGAL INFECTION

REACTIONS (3)
  - Vision blurred [Not Recovered/Not Resolved]
  - Drug ineffective [Unknown]
  - Eye colour change [Not Recovered/Not Resolved]

NARRATIVE: CASE EVENT DATE: 201606
